FAERS Safety Report 6261499-1 (Version None)
Quarter: 2009Q3

REPORT INFORMATION
  Report Type: 
  Country: None (occurrence: None)
  Receive Date: 20090702
  Receipt Date: 20090413
  Transmission Date: 20100115
  Serious: No
  Sender: FDA-Public Use
  Company Number: 1000005753

PATIENT
  Age: 84 Year
  Sex: Female

DRUGS (4)
  1. BYSTOLIC [Suspect]
     Indication: HYPERTENSION
     Dosage: 10 MG (10 MG, 1 IN 1 D),ORAL
     Route: 048
     Dates: start: 20080101
  2. ARICEPT [Suspect]
     Indication: DEMENTIA
  3. DIGOXIN [Concomitant]
  4. COUMADIN [Concomitant]

REACTIONS (2)
  - ABNORMAL DREAMS [None]
  - HALLUCINATION [None]
